FAERS Safety Report 15676728 (Version 1)
Quarter: 2018Q4

REPORT INFORMATION
  Report Type: Not Available
  Country: IT (occurrence: IT)
  Receive Date: 20181130
  Receipt Date: 20181130
  Transmission Date: 20190205
  Serious: Yes (Hospitalization)
  Sender: FDA-Public Use
  Company Number: IT-SYNTHON BV-NL01PV18_47732

PATIENT
  Age: 87 Year
  Sex: Male

DRUGS (8)
  1. TAMSULOSIN [Suspect]
     Active Substance: TAMSULOSIN
     Indication: BENIGN PROSTATIC HYPERPLASIA
     Dosage: 0.4 MG, QD
     Route: 048
     Dates: start: 20170101, end: 20170515
  2. LUVION                             /00252501/ [Concomitant]
     Active Substance: CANRENOIC ACID
     Dosage: ()
  3. NORVASC [Concomitant]
     Active Substance: AMLODIPINE BESYLATE
     Dosage: ()
  4. LANSOX [Concomitant]
     Active Substance: LANSOPRAZOLE
     Dosage: ()
  5. LASIX [Concomitant]
     Active Substance: FUROSEMIDE
     Dosage: ()
  6. VILDAGLIPTIN [Concomitant]
     Active Substance: VILDAGLIPTIN
     Dosage: ()
  7. FINASTERIDE. [Concomitant]
     Active Substance: FINASTERIDE
     Dosage: ()
  8. CARDIRENE [Concomitant]
     Active Substance: ASPIRIN DL-LYSINE
     Dosage: ()

REACTIONS (1)
  - Balance disorder [Unknown]

NARRATIVE: CASE EVENT DATE: 20170515
